FAERS Safety Report 17535012 (Version 2)
Quarter: 2020Q1

REPORT INFORMATION
  Report Type: Spontaneous
  Country: US (occurrence: US)
  Receive Date: 20200312
  Receipt Date: 20200313
  Transmission Date: 20200409
  Serious: Yes (Other)
  Sender: FDA-Public Use
  Company Number: US-HQ SPECIALTY-US-2020INT000020

PATIENT
  Age: 10 Month
  Sex: Male

DRUGS (14)
  1. DEXMEDETOMIDINE HYDROCHLORIDE. [Suspect]
     Active Substance: DEXMEDETOMIDINE HYDROCHLORIDE
     Dosage: TAPERED OFF AFTER TWO DAYS (1.4 UG/KG,1 HR)
     Route: 042
  2. MIDAZOLAM HYDROCHLORIDE. [Concomitant]
     Active Substance: MIDAZOLAM HYDROCHLORIDE
     Dosage: 1.7 MG/KG,1 HR
     Route: 065
  3. MIDAZOLAM HYDROCHLORIDE. [Concomitant]
     Active Substance: MIDAZOLAM HYDROCHLORIDE
     Dosage: 0.4 MG/KG,1 HR
     Route: 040
  4. FENTANYL. [Concomitant]
     Active Substance: FENTANYL
     Indication: SEDATION
     Dosage: 1.8 UG/KG,1 HR
     Route: 065
  5. KETAMINE [Concomitant]
     Active Substance: KETAMINE
     Indication: PRODUCT USED FOR UNKNOWN INDICATION
     Dosage: 1.4 MG/KG,1 HR
     Route: 065
  6. MIDAZOLAM HYDROCHLORIDE. [Concomitant]
     Active Substance: MIDAZOLAM HYDROCHLORIDE
     Dosage: 2 MG/KG,1 HR
     Route: 065
  7. MIDAZOLAM HYDROCHLORIDE. [Concomitant]
     Active Substance: MIDAZOLAM HYDROCHLORIDE
     Dosage: UNK
     Route: 065
  8. FENTANYL. [Concomitant]
     Active Substance: FENTANYL
     Dosage: 3.5 UG/KG,1 HR
     Route: 065
  9. DEXMEDETOMIDINE HYDROCHLORIDE. [Suspect]
     Active Substance: DEXMEDETOMIDINE HYDROCHLORIDE
     Indication: SEDATION
     Dosage: (0.4 UG/KG,1 HR), POSTOPERATIVE DAY 28
     Route: 042
  10. DEXMEDETOMIDINE HYDROCHLORIDE. [Suspect]
     Active Substance: DEXMEDETOMIDINE HYDROCHLORIDE
     Dosage: PER DAY OVER TWO WEEKS (0.06 UG/KG,1 HR)
     Route: 042
  11. MIDAZOLAM HYDROCHLORIDE. [Concomitant]
     Active Substance: MIDAZOLAM HYDROCHLORIDE
     Indication: SEDATION
     Dosage: 0.1 MG/KG,1 HR
     Route: 065
  12. FENTANYL. [Concomitant]
     Active Substance: FENTANYL
     Dosage: 5 UG/KG,1 HR
     Route: 065
  13. MIDAZOLAM HYDROCHLORIDE. [Concomitant]
     Active Substance: MIDAZOLAM HYDROCHLORIDE
     Dosage: UNK
     Route: 065
  14. FENTANYL. [Concomitant]
     Active Substance: FENTANYL
     Dosage: 2.8 UG/KG,1 HR
     Route: 065

REACTIONS (13)
  - Drug tolerance [Recovered/Resolved]
  - Respiratory depression [Recovered/Resolved]
  - Generalised tonic-clonic seizure [Recovered/Resolved]
  - Joint swelling [Recovered/Resolved]
  - Restlessness [Recovered/Resolved]
  - Withdrawal hypertension [Recovered/Resolved]
  - Product administered to patient of inappropriate age [Unknown]
  - Anxiety [Recovered/Resolved]
  - Agitation [Recovered/Resolved]
  - Catheter site extravasation [Recovered/Resolved]
  - Blood alkaline phosphatase increased [Recovered/Resolved]
  - Discomfort [Recovered/Resolved]
  - Drug withdrawal syndrome [Recovered/Resolved]
